FAERS Safety Report 9279569 (Version 2)
Quarter: 2013Q2

REPORT INFORMATION
  Report Type: Spontaneous
  Country: CO (occurrence: CO)
  Receive Date: 20130509
  Receipt Date: 20130510
  Transmission Date: 20140414
  Serious: Yes (Hospitalization, Other)
  Sender: FDA-Public Use
  Company Number: CO-MERCK-1305COL003337

PATIENT
  Age: 44 Year
  Sex: Male

DRUGS (4)
  1. PEG-INTRON [Suspect]
     Indication: HEPATITIS C
     Dosage: 120 MICROGRAM PER KILOGRAM, QW
     Route: 058
     Dates: start: 20130426, end: 20130427
  2. REBETOL [Suspect]
     Indication: HEPATITIS C
     Dosage: 1200 MG
     Route: 048
     Dates: start: 20130426, end: 20130427
  3. VICTRELIS [Suspect]
     Indication: HEPATITIS C
     Dosage: 2400 MG
     Route: 048
     Dates: start: 20130426, end: 20130427
  4. FEIBA [Concomitant]
     Indication: HAEMARTHROSIS
     Dosage: UNK
     Dates: end: 201211

REACTIONS (2)
  - Cholelithiasis [Unknown]
  - Cholecystectomy [Not Recovered/Not Resolved]
